FAERS Safety Report 8063716 (Version 3)
Quarter: 2012Q4

REPORT INFORMATION
  Report Type: 
  Country: IT (occurrence: IT)
  Receive Date: 20110801
  Receipt Date: 20121009
  Transmission Date: 20130627
  Serious: No
  Sender: FDA-Public Use
  Company Number: PHHY2011IT64948

PATIENT
  Age: 43 Year
  Sex: Male

DRUGS (2)
  1. TASIGNA [Suspect]
     Indication: CHRONIC MYELOID LEUKAEMIA
     Dosage: 600 mg, daily
     Route: 048
     Dates: start: 20091126
  2. TASIGNA [Suspect]
     Dosage: 400 mg, daily
     Route: 048
     Dates: end: 20091228

REACTIONS (1)
  - Blood creatine phosphokinase increased [Recovering/Resolving]
